FAERS Safety Report 25462244 (Version 1)
Quarter: 2025Q2

REPORT INFORMATION
  Report Type: Spontaneous
  Country: US (occurrence: US)
  Receive Date: 20250620
  Receipt Date: 20250620
  Transmission Date: 20250717
  Serious: No
  Sender: AMARIN
  Company Number: US-Amarin Pharma  Inc-2025AMR000379

PATIENT
  Age: 55 Year
  Sex: Female

DRUGS (5)
  1. VASCEPA [Suspect]
     Active Substance: ICOSAPENT ETHYL
     Indication: Type IIa hyperlipidaemia
     Route: 065
     Dates: start: 2020, end: 2024
  2. VASCEPA [Suspect]
     Active Substance: ICOSAPENT ETHYL
     Route: 065
  3. REPATHA [Concomitant]
     Active Substance: EVOLOCUMAB
  4. ZETIA [Concomitant]
     Active Substance: EZETIMIBE
  5. NEXLETOL [Concomitant]
     Active Substance: BEMPEDOIC ACID

REACTIONS (6)
  - Poor quality product administered [Unknown]
  - Product dose omission issue [Unknown]
  - Product dispensing error [Unknown]
  - Product storage error [Unknown]
  - Product physical issue [Unknown]
  - Product odour abnormal [Unknown]

NARRATIVE: CASE EVENT DATE: 20240101
